FAERS Safety Report 15112014 (Version 1)
Quarter: 2018Q3

REPORT INFORMATION
  Report Type: Report from Study
  Country: IT (occurrence: IT)
  Receive Date: 20180705
  Receipt Date: 20180705
  Transmission Date: 20181010
  Serious: Yes (Hospitalization)
  Sender: FDA-Public Use
  Company Number: IT-TEVA-2018-IT-921160

PATIENT
  Age: 84 Year
  Sex: Male

DRUGS (6)
  1. LASIX [Concomitant]
     Active Substance: FUROSEMIDE
  2. OMNIC 0,4 MG, CAPSULE RIGIDE A RILASCIO MODIFICATO [Concomitant]
  3. METFORMIN [Concomitant]
     Active Substance: METFORMIN HYDROCHLORIDE
  4. REPAGLINIDE. [Concomitant]
     Active Substance: REPAGLINIDE
  5. CATAPRESAN TTS?2 5 MG CEROTTI TRANSDERMICI [Concomitant]
  6. VERAPAMIL [Suspect]
     Active Substance: VERAPAMIL HYDROCHLORIDE
     Dosage: 480 MILLIGRAM DAILY;
     Route: 048
     Dates: start: 20170406, end: 20170409

REACTIONS (3)
  - Medication error [Recovering/Resolving]
  - Bradycardia [Recovering/Resolving]
  - Cardiac failure [Recovering/Resolving]

NARRATIVE: CASE EVENT DATE: 20170409
